FAERS Safety Report 4939406-0 (Version None)
Quarter: 2006Q1

REPORT INFORMATION
  Report Type: 
  Country: None (occurrence: None)
  Receive Date: 20060307
  Receipt Date: 20060222
  Transmission Date: 20060701
  Serious: Yes (Other)
  Sender: FDA-Public Use
  Company Number: S06-ESP-00989-01

PATIENT
  Age: 84 Year
  Sex: Female
  Weight: 53 kg

DRUGS (2)
  1. MEMANTINE HCL [Suspect]
     Indication: DEMENTIA
     Dosage: 20 MG UNK PO
     Route: 048
     Dates: start: 20050204, end: 20050812
  2. MEMANTINE HCL [Suspect]
     Indication: DEMENTIA
     Dosage: UNK
     Route: 065

REACTIONS (1)
  - HYPERTENSIVE CRISIS [None]
